FAERS Safety Report 14927104 (Version 1)
Quarter: 2018Q2

REPORT INFORMATION
  Report Type: Spontaneous
  Country: JP (occurrence: JP)
  Receive Date: 20180523
  Receipt Date: 20180523
  Transmission Date: 20180711
  Serious: Yes (Hospitalization, Other)
  Sender: FDA-Public Use
  Company Number: JP-009507513-1805JPN001638J

PATIENT

DRUGS (2)
  1. GRAZYNA TABLETS 50MG [Suspect]
     Active Substance: GRAZOPREVIR
     Indication: LIVER DISORDER
     Dosage: UNK
     Route: 048
  2. ERELSA TABLETS 50MG [Suspect]
     Active Substance: ELBASVIR
     Indication: LIVER DISORDER
     Dosage: UNK
     Route: 048

REACTIONS (1)
  - Atrial fibrillation [Recovering/Resolving]
